FAERS Safety Report 4930547-0 (Version None)
Quarter: 2006Q1

REPORT INFORMATION
  Report Type: 
  Country: None (occurrence: None)
  Receive Date: 20060302
  Receipt Date: 20050914
  Transmission Date: 20060701
  Serious: Yes (Hospitalization)
  Sender: FDA-Public Use
  Company Number: US-MERCK-0509USA01943

PATIENT
  Age: 54 Year
  Sex: Male

DRUGS (2)
  1. VIOXX [Suspect]
     Indication: BACK PAIN
     Route: 048
     Dates: start: 20000101, end: 20040101
  2. ANALGESIC OR ANESTHETIC (UNSPECIFIED) [Concomitant]
     Indication: PAIN
     Route: 065

REACTIONS (8)
  - BACK DISORDER [None]
  - BLADDER DISORDER [None]
  - HEART RATE INCREASED [None]
  - HEART RATE IRREGULAR [None]
  - HERNIA [None]
  - INTESTINAL FUNCTIONAL DISORDER [None]
  - NERVOUSNESS [None]
  - VISUAL DISTURBANCE [None]
